FAERS Safety Report 6049943-6 (Version None)
Quarter: 2009Q1

REPORT INFORMATION
  Report Type: 
  Country: None (occurrence: None)
  Receive Date: 20090126
  Receipt Date: 20090119
  Transmission Date: 20090719
  Serious: Yes (Hospitalization)
  Sender: FDA-Public Use
  Company Number: FR-BAXTER-2009BH001031

PATIENT
  Age: 62 Year
  Sex: Male

DRUGS (4)
  1. HOLOXAN BAXTER [Suspect]
     Indication: SARCOMA
     Route: 042
     Dates: start: 20081215, end: 20081216
  2. DOXORUBICIN HCL [Suspect]
     Indication: SARCOMA
     Route: 042
     Dates: start: 20081215, end: 20081217
  3. ZOPHREN [Concomitant]
  4. EMEND [Concomitant]

REACTIONS (5)
  - APHASIA [None]
  - ASTERIXIS [None]
  - CONFUSIONAL STATE [None]
  - EXTRAPYRAMIDAL DISORDER [None]
  - TOXIC ENCEPHALOPATHY [None]
